FAERS Safety Report 8128894-7 (Version None)
Quarter: 2012Q1

REPORT INFORMATION
  Report Type: 
  Country: None (occurrence: None)
  Receive Date: 20120210
  Receipt Date: 20110427
  Transmission Date: 20120608
  Serious: Yes (Other)
  Sender: FDA-Public Use
  Company Number: US-BRISTOL-MYERS SQUIBB COMPANY-15703036

PATIENT
  Age: 75 Year
  Sex: Male
  Weight: 82 kg

DRUGS (9)
  1. ORENCIA [Suspect]
     Dates: end: 20101201
  2. FISH OIL [Concomitant]
  3. METHOTREXATE [Suspect]
  4. LOVASTATIN [Concomitant]
  5. PREDNISONE TAB [Concomitant]
  6. OMEPRAZOLE [Concomitant]
  7. CALCIUM [Concomitant]
  8. ASPIRIN [Concomitant]
  9. FOLIC ACID [Concomitant]

REACTIONS (1)
  - PROSTATE CANCER [None]
